FAERS Safety Report 10348897 (Version 5)
Quarter: 2015Q3

REPORT INFORMATION
  Report Type: Spontaneous
  Country: CA (occurrence: CA)
  Receive Date: 20140729
  Receipt Date: 20150705
  Transmission Date: 20151125
  Serious: Yes (Life-Threatening, Hospitalization, Other)
  Sender: FDA-Public Use
  Company Number: CA-GILEAD-2014-0110187

PATIENT
  Age: 60 Year
  Sex: Male
  Weight: 77.4 kg

DRUGS (8)
  1. GALEXOS [Suspect]
     Active Substance: SIMEPREVIR
     Indication: CHRONIC HEPATITIS C
     Dosage: 150 MG, QD
     Route: 048
     Dates: start: 20140307, end: 20140529
  2. CRESTOR [Concomitant]
     Active Substance: ROSUVASTATIN CALCIUM
     Dosage: 5 MG, UNK
  3. FERROUS GLUCONATE [Concomitant]
     Active Substance: FERROUS GLUCONATE
  4. NADOLOL. [Concomitant]
     Active Substance: NADOLOL
     Dosage: 40 MG, UNK
  5. FUROSEMIDE. [Concomitant]
     Active Substance: FUROSEMIDE
  6. AMILORIDE [Concomitant]
     Active Substance: AMILORIDE
     Dosage: 10 MG, UNK
  7. SOVALDI [Suspect]
     Active Substance: SOFOSBUVIR
     Indication: CHRONIC HEPATITIS C
     Dosage: 400 MG, QD
     Route: 048
     Dates: start: 20140307, end: 20140529
  8. ROSUVASTATIN CALCIUM. [Concomitant]
     Active Substance: ROSUVASTATIN CALCIUM

REACTIONS (12)
  - Renal failure [Unknown]
  - Encephalopathy [Not Recovered/Not Resolved]
  - Scrotal swelling [Unknown]
  - Ascites [Unknown]
  - Cardiac murmur [Not Recovered/Not Resolved]
  - Cardiac failure [Not Recovered/Not Resolved]
  - Off label use [Unknown]
  - Cardiac failure congestive [Unknown]
  - Upper gastrointestinal haemorrhage [Unknown]
  - Drug intolerance [Not Recovered/Not Resolved]
  - Blood creatinine increased [Not Recovered/Not Resolved]
  - Venous pressure jugular increased [Not Recovered/Not Resolved]

NARRATIVE: CASE EVENT DATE: 20140603
